FAERS Safety Report 8280397 (Version 2)
Quarter: 2012Q4

REPORT INFORMATION
  Report Type: 
  Country: CA (occurrence: CA)
  Receive Date: 20111208
  Receipt Date: 20121130
  Transmission Date: 20130627
  Serious: Yes (Disabling, Other)
  Sender: FDA-Public Use
  Company Number: CA-ASTRAZENECA-2011SE18702

PATIENT
  Age: 69 Year
  Sex: Male
  Weight: 76.2 kg

DRUGS (20)
  1. SYMBICORT TURBUHALER [Suspect]
     Dosage: 160/4.5 MCG TWO INHALATIONS TWICE DAILY
     Route: 055
  2. SYMBICORT TURBUHALER [Suspect]
     Dosage: 200, Unknown
     Route: 055
  3. NEXIUM [Suspect]
     Route: 048
  4. CRESTOR [Suspect]
     Route: 048
  5. CRESTOR [Suspect]
     Route: 048
     Dates: start: 2011
  6. ALTACE [Concomitant]
     Route: 048
  7. ASPIRIN [Concomitant]
     Route: 048
  8. CELEBREX [Concomitant]
     Route: 048
  9. APO FUROSEMIDE [Concomitant]
     Route: 048
  10. APO FUROSEMIDE [Concomitant]
     Route: 048
  11. SINGULAIR [Concomitant]
     Route: 048
  12. ADVAIR [Concomitant]
     Dosage: 500
     Route: 065
  13. ADVAIR [Concomitant]
     Route: 065
  14. BACTROBAN [Concomitant]
     Route: 061
  15. BRICANYL TURBUHALER [Concomitant]
     Dosage: 0.5 MG/AEM
     Route: 065
  16. CALCIUM [Concomitant]
  17. CENTRUM [Concomitant]
     Route: 065
  18. EFUDEX CRM [Concomitant]
     Route: 065
  19. GARLIC [Concomitant]
  20. VITAMIN D [Concomitant]

REACTIONS (3)
  - Fall [Recovered/Resolved]
  - Muscular weakness [Recovered/Resolved]
  - Muscle spasms [Recovering/Resolving]
